FAERS Safety Report 17009277 (Version 1)
Quarter: 2019Q4

REPORT INFORMATION
  Report Type: Spontaneous
  Country: CA (occurrence: CA)
  Receive Date: 20191108
  Receipt Date: 20191108
  Transmission Date: 20200122
  Serious: Yes (Hospitalization)
  Sender: FDA-Public Use
  Company Number: CA-GLAXOSMITHKLINE-CA2019201568

PATIENT
  Age: 66 Year
  Sex: Female

DRUGS (1)
  1. VENTOLIN HFA [Suspect]
     Active Substance: ALBUTEROL SULFATE
     Indication: PRODUCT USED FOR UNKNOWN INDICATION
     Dosage: 4 DF, UNKEVERY 4 HOURS

REACTIONS (7)
  - Cardiac disorder [Unknown]
  - Overdose [Unknown]
  - Product use issue [Unknown]
  - Product prescribing issue [Unknown]
  - Panic reaction [Unknown]
  - Dyspnoea [Unknown]
  - Malaise [Recovering/Resolving]
